FAERS Safety Report 18091253 (Version 1)
Quarter: 2020Q3

REPORT INFORMATION
  Report Type: Spontaneous
  Country: US (occurrence: US)
  Receive Date: 20200729
  Receipt Date: 20200729
  Transmission Date: 20201103
  Serious: Yes (Hospitalization)
  Sender: FDA-Public Use
  Company Number: None

PATIENT
  Age: 44 Year
  Sex: Female

DRUGS (4)
  1. RASUVO [Concomitant]
     Active Substance: METHOTREXATE SODIUM
  2. TRAMADOL HCL [Concomitant]
     Active Substance: TRAMADOL HYDROCHLORIDE
  3. COSENTYX [Suspect]
     Active Substance: SECUKINUMAB
     Indication: SPONDYLOARTHROPATHY
     Dosage: ?          OTHER DOSE:2 PENS;?
     Route: 058
     Dates: start: 20200320
  4. METHYLPRED [Concomitant]
     Active Substance: METHYLPREDNISOLONE

REACTIONS (2)
  - Syncope [None]
  - Therapy interrupted [None]

NARRATIVE: CASE EVENT DATE: 20200720
